FAERS Safety Report 13165916 (Version 1)
Quarter: 2017Q1

REPORT INFORMATION
  Report Type: Spontaneous
  Country: CN (occurrence: CN)
  Receive Date: 20170131
  Receipt Date: 20170131
  Transmission Date: 20170428
  Serious: Yes (Life-Threatening, Other)
  Sender: FDA-Public Use
  Company Number: CN-ACCORD-047718

PATIENT
  Age: 39 Year
  Sex: Male

DRUGS (6)
  1. FLUOROURACIL. [Suspect]
     Active Substance: FLUOROURACIL
     Indication: NASOPHARYNGEAL CANCER
     Dosage: DAYS 1-5?RECEIVED 3 CYCLES
  2. PACLITAXEL/PACLITAXEL LIPOSOME [Suspect]
     Active Substance: PACLITAXEL
     Indication: NASOPHARYNGEAL CANCER
     Dosage: DAY 1?RECEIVED 3 CYCLES
  3. BEVACIZUMAB [Suspect]
     Active Substance: BEVACIZUMAB
     Indication: NASOPHARYNGEAL CANCER
     Dosage: DAY 1, THREE CYCLES GIVEN
  4. NEDAPLATIN [Suspect]
     Active Substance: NEDAPLATIN
     Indication: NASOPHARYNGEAL CANCER
     Dosage: DAY 1, THREE CYCLES GIVEN
  5. GEMCITABINE/GEMCITABINE HYDROCHLORIDE [Suspect]
     Active Substance: GEMCITABINE\GEMCITABINE HYDROCHLORIDE
     Indication: NASOPHARYNGEAL CANCER
  6. CISPLATIN. [Suspect]
     Active Substance: CISPLATIN
     Indication: NASOPHARYNGEAL CANCER
     Dosage: DAYS 1-5?RECEIVED 3 CYCLES

REACTIONS (2)
  - Drug resistance [Unknown]
  - Hepatic function abnormal [Recovered/Resolved]
